FAERS Safety Report 7611528-5 (Version None)
Quarter: 2011Q3

REPORT INFORMATION
  Report Type: 
  Country: None (occurrence: None)
  Receive Date: 20110715
  Receipt Date: 20110630
  Transmission Date: 20111222
  Serious: Yes (Hospitalization, Other)
  Sender: FDA-Public Use
  Company Number: GB-WATSON-2011-10416

PATIENT
  Age: 59 Year
  Sex: Male
  Weight: 84.3 kg

DRUGS (16)
  1. ENALAPRIL MALEATE [Concomitant]
     Indication: PRODUCT USED FOR UNKNOWN INDICATION
     Route: 065
  2. ACETAMINOPHEN [Concomitant]
     Indication: PRODUCT USED FOR UNKNOWN INDICATION
     Dosage: 1 G, QID
     Route: 048
  3. FENTANYL [Suspect]
     Indication: ARTHRITIS
     Dosage: UNK
     Route: 062
  4. ACYCLOVIR [Concomitant]
     Indication: PRODUCT USED FOR UNKNOWN INDICATION
     Dosage: 5% FIVE TIMES DAILY
     Route: 061
  5. AMITRIPTYLINE HCL [Concomitant]
     Indication: PRODUCT USED FOR UNKNOWN INDICATION
     Dosage: 10 MG, BID
     Route: 065
  6. DURAGESIC-100 [Suspect]
     Indication: ARTHRITIS
     Dosage: 72 HOURS
     Route: 062
  7. ETODOLAC [Concomitant]
     Indication: PRODUCT USED FOR UNKNOWN INDICATION
     Dosage: 600 MG, DAILY
     Route: 048
  8. MORPHINE [Concomitant]
     Indication: BREAKTHROUGH PAIN
     Route: 048
  9. ASPIRIN [Concomitant]
     Indication: PRODUCT USED FOR UNKNOWN INDICATION
     Dosage: 75 MG, DAILY
     Route: 048
  10. OMEPRAZOLE [Concomitant]
     Indication: PRODUCT USED FOR UNKNOWN INDICATION
     Dosage: 20 MG, DAILY
     Route: 048
  11. MORPHGESIC [Concomitant]
     Indication: PRODUCT USED FOR UNKNOWN INDICATION
     Dosage: 20 MG, BID
     Route: 065
  12. PREGABALIN [Concomitant]
     Indication: PRODUCT USED FOR UNKNOWN INDICATION
     Dosage: 100 MG, BID
     Route: 048
  13. CITALOPRAM HYDROBROMIDE [Concomitant]
     Indication: PRODUCT USED FOR UNKNOWN INDICATION
     Dosage: 20 MG, DAILY
     Route: 048
  14. FERROUS SULPHATE                   /00023503/ [Concomitant]
     Indication: PRODUCT USED FOR UNKNOWN INDICATION
     Dosage: 200 MG, BID
     Route: 065
  15. OMEPRAZOLE [Concomitant]
     Dosage: 20 MG, BID
     Route: 048
  16. PREGABALIN [Concomitant]
     Dosage: 150 MG, BID
     Route: 048

REACTIONS (30)
  - HYPERSENSITIVITY [None]
  - DYSKINESIA [None]
  - SKIN IRRITATION [None]
  - TRANSIENT ISCHAEMIC ATTACK [None]
  - HALLUCINATION [None]
  - HEADACHE [None]
  - HYPOTENSION [None]
  - AMNESIA [None]
  - ERYTHEMA [None]
  - SKIN REACTION [None]
  - CEREBROVASCULAR ACCIDENT [None]
  - MUSCLE SPASMS [None]
  - MUSCULAR WEAKNESS [None]
  - SEXUAL DYSFUNCTION [None]
  - ANAEMIA [None]
  - DELUSION [None]
  - INFLUENZA LIKE ILLNESS [None]
  - GASTRIC DISORDER [None]
  - PYREXIA [None]
  - WITHDRAWAL SYNDROME [None]
  - BREAKTHROUGH PAIN [None]
  - LOWER RESPIRATORY TRACT INFECTION [None]
  - CONFUSIONAL STATE [None]
  - CONJUNCTIVITIS [None]
  - RENAL DISORDER [None]
  - MOOD SWINGS [None]
  - RESPIRATORY DISORDER [None]
  - AGGRESSION [None]
  - PERIPHERAL COLDNESS [None]
  - DIZZINESS [None]
